FAERS Safety Report 5800304-1 (Version None)
Quarter: 2008Q3

REPORT INFORMATION
  Report Type: 
  Country: None (occurrence: None)
  Receive Date: 20080703
  Receipt Date: 20080627
  Transmission Date: 20090109
  Serious: Yes (Death, Hospitalization)
  Sender: FDA-Public Use
  Company Number: CN-AVENTIS-200813941GDDC

PATIENT
  Age: 71 Year
  Sex: Male
  Weight: 65 kg

DRUGS (2)
  1. DOCETAXEL [Suspect]
     Indication: NON-SMALL CELL LUNG CANCER
     Route: 042
     Dates: start: 20080407, end: 20080407
  2. RADIOTHERAPY [Suspect]
     Indication: NON-SMALL CELL LUNG CANCER
     Dosage: DOSE: 40 GY/20 FRA TO THE PRIMARY FOCUS AND LYMPH NODE AREA
     Dates: start: 20080125, end: 20080226

REACTIONS (2)
  - PNEUMONIA [None]
  - RESPIRATORY FAILURE [None]
